FAERS Safety Report 6925026-5 (Version None)
Quarter: 2010Q3

REPORT INFORMATION
  Report Type: 
  Country: None (occurrence: None)
  Receive Date: 20100816
  Receipt Date: 20100804
  Transmission Date: 20110219
  Serious: Yes (Other)
  Sender: FDA-Public Use
  Company Number: AU-PFIZER INC-2010097584

PATIENT
  Sex: Female

DRUGS (1)
  1. SYNAREL [Suspect]

REACTIONS (3)
  - ABDOMINAL DISTENSION [None]
  - AMENORRHOEA [None]
  - MENSTRUATION DELAYED [None]
